FAERS Safety Report 7451532-3 (Version None)
Quarter: 2011Q2

REPORT INFORMATION
  Report Type: 
  Country: None (occurrence: None)
  Receive Date: 20110502
  Receipt Date: 20110421
  Transmission Date: 20111010
  Serious: Yes (Other)
  Sender: FDA-Public Use
  Company Number: PHHY2011CA32623

PATIENT
  Sex: Female

DRUGS (4)
  1. ACLASTA [Suspect]
     Indication: OSTEOPOROSIS
     Dosage: 5 MG, YERALY
     Route: 042
     Dates: start: 20091101
  2. CALCIUM [Concomitant]
  3. VITAMIN D [Concomitant]
  4. ACLASTA [Suspect]
     Dosage: 5 MG, YERALY
     Route: 042
     Dates: start: 20101130

REACTIONS (2)
  - FALL [None]
  - WRIST FRACTURE [None]
